FAERS Safety Report 7226530-5 (Version None)
Quarter: 2011Q1

REPORT INFORMATION
  Report Type: 
  Country: None (occurrence: None)
  Receive Date: 20110105
  Receipt Date: 20101220
  Transmission Date: 20110831
  Serious: Yes (Other)
  Sender: FDA-Public Use
  Company Number: 2007000923

PATIENT
  Age: 78 Year
  Sex: Male
  Weight: 75.7 kg

DRUGS (2)
  1. ERLOTINIB HYDROCHLORIDE [Suspect]
     Indication: NON-SMALL CELL LUNG CANCER
     Dosage: 150 MG (MG, QD), ORAL
     Route: 048
     Dates: start: 20070227, end: 20070501
  2. BEVACIZUMAB (INJECTION FOR INFUSION) [Suspect]
     Indication: NON-SMALL CELL LUNG CANCER
     Dosage: 1268 MG (1268 MG, 1 X PER 3 WEEKS), INTRAVENOUS
     Route: 042
     Dates: start: 20070227, end: 20070501

REACTIONS (2)
  - NEUTROPENIA [None]
  - DEHYDRATION [None]
